FAERS Safety Report 7414832-9 (Version None)
Quarter: 2011Q2

REPORT INFORMATION
  Report Type: 
  Country: None (occurrence: None)
  Receive Date: 20110406
  Receipt Date: 20110328
  Transmission Date: 20111010
  Serious: Yes (Other)
  Sender: FDA-Public Use
  Company Number: 20109398

PATIENT
  Age: 38 Year
  Sex: Female

DRUGS (1)
  1. LIORESAL [Suspect]
     Indication: MUSCLE SPASTICITY
     Dosage: SEE B5 MCG; DAILY, INTRATHECAL
     Route: 037

REACTIONS (10)
  - FALL [None]
  - OVERDOSE [None]
  - HYPOTENSION [None]
  - DEPRESSED LEVEL OF CONSCIOUSNESS [None]
  - CEREBROVASCULAR ACCIDENT [None]
  - CONDITION AGGRAVATED [None]
  - HYPOTONIA [None]
  - MUSCLE SPASTICITY [None]
  - TOXICITY TO VARIOUS AGENTS [None]
  - NAUSEA [None]
